FAERS Safety Report 13299568 (Version 2)
Quarter: 2017Q1

REPORT INFORMATION
  Report Type: Spontaneous
  Country: US (occurrence: US)
  Receive Date: 20170306
  Receipt Date: 20170321
  Transmission Date: 20170428
  Serious: Yes (Death, Life-Threatening, Other)
  Sender: FDA-Public Use
  Company Number: US-ELI_LILLY_AND_COMPANY-US201608003001

PATIENT
  Age: 48 Year
  Sex: Female

DRUGS (2)
  1. CYMBALTA [Suspect]
     Active Substance: DULOXETINE HYDROCHLORIDE
     Indication: DEPRESSION
     Dosage: 60 MG, BID
     Route: 048
  2. CYMBALTA [Suspect]
     Active Substance: DULOXETINE HYDROCHLORIDE
     Indication: FIBROMYALGIA
     Dosage: 60 MG, QD
     Route: 048

REACTIONS (29)
  - Vomiting [Unknown]
  - Acute respiratory distress syndrome [Fatal]
  - Seizure [Unknown]
  - Tremor [Unknown]
  - Cardiac arrest [Fatal]
  - Confusional state [Unknown]
  - Diarrhoea [Unknown]
  - Mesenteric vascular occlusion [Unknown]
  - Intestinal ischaemia [Unknown]
  - Dysphoria [Unknown]
  - Agitation [Unknown]
  - Affect lability [Unknown]
  - Sensory disturbance [Unknown]
  - Anxiety [Unknown]
  - Insomnia [Unknown]
  - Intentional product misuse [Unknown]
  - Vertigo [Unknown]
  - Drug withdrawal syndrome [Unknown]
  - Hyperhidrosis [Unknown]
  - Headache [Unknown]
  - Pulmonary hypertension [Unknown]
  - Suicidal ideation [Unknown]
  - Nausea [Unknown]
  - Fatigue [Unknown]
  - Irritability [Unknown]
  - Alcohol withdrawal syndrome [Unknown]
  - Paraesthesia [Unknown]
  - Dizziness [Unknown]
  - Lethargy [Unknown]

NARRATIVE: CASE EVENT DATE: 20160110
